FAERS Safety Report 5350477-2 (Version None)
Quarter: 2007Q2

REPORT INFORMATION
  Report Type: 
  Country: None (occurrence: None)
  Receive Date: 20070608
  Receipt Date: 20070601
  Transmission Date: 20071010
  Serious: Yes (Hospitalization)
  Sender: FDA-Public Use
  Company Number: CH-BAYER-200713045GDS

PATIENT
  Age: 53 Year
  Sex: Male
  Weight: 70 kg

DRUGS (11)
  1. ASPIRIN [Suspect]
     Indication: PROPHYLAXIS
     Route: 048
     Dates: start: 20061101
  2. ABCIXIMAB [Suspect]
     Indication: PROPHYLAXIS
     Route: 042
     Dates: start: 20061101, end: 20061101
  3. HEPARIN [Suspect]
     Indication: PROPHYLAXIS
     Route: 042
     Dates: start: 20061101, end: 20061101
  4. CLOPIDOGREL [Suspect]
     Indication: PROPHYLAXIS
     Route: 048
     Dates: start: 20061101
  5. AMIODARONE HCL [Concomitant]
     Indication: DRUG USE FOR UNKNOWN INDICATION
     Route: 042
     Dates: start: 20061101, end: 20061114
  6. PHENTOLAMINE MESYLATE [Concomitant]
     Indication: DRUG USE FOR UNKNOWN INDICATION
     Route: 042
     Dates: start: 20061101, end: 20061113
  7. GLYCERYL TRINITRATE [Concomitant]
     Indication: DRUG USE FOR UNKNOWN INDICATION
     Route: 042
     Dates: start: 20061101, end: 20061101
  8. ATORVASTATIN [Concomitant]
     Indication: DRUG USE FOR UNKNOWN INDICATION
     Route: 048
     Dates: start: 20061101
  9. AMOXICLAV [Concomitant]
     Indication: DRUG USE FOR UNKNOWN INDICATION
     Dosage: TOTAL DAILY DOSE: 3.6 G
     Route: 042
     Dates: start: 20061101, end: 20061113
  10. RAMIPRIL [Concomitant]
     Indication: DRUG USE FOR UNKNOWN INDICATION
     Route: 048
     Dates: start: 20061101, end: 20061104
  11. LEVOSIMENDAN [Concomitant]
     Indication: DRUG USE FOR UNKNOWN INDICATION
     Route: 042
     Dates: start: 20061101, end: 20061102

REACTIONS (5)
  - EPISTAXIS [None]
  - HAEMATEMESIS [None]
  - HAEMATURIA [None]
  - HAEMORRHAGIC ANAEMIA [None]
  - THROMBOCYTOPENIA [None]
